FAERS Safety Report 21998437 (Version 3)
Quarter: 2023Q2

REPORT INFORMATION
  Report Type: Other
  Country: IN (occurrence: None)
  Receive Date: 20230216
  Receipt Date: 20230630
  Transmission Date: 20230722
  Serious: Yes (Other)
  Sender: FDA-Public Use
  Company Number: IN-ROCHE-3228526

PATIENT
  Age: 55 Year
  Sex: Female

DRUGS (1)
  1. PERJETA [Suspect]
     Active Substance: PERTUZUMAB
     Indication: Breast cancer metastatic
     Route: 042
     Dates: start: 20221014

REACTIONS (6)
  - Pericardial effusion [Unknown]
  - Asthenia [Unknown]
  - Dyspnoea [Unknown]
  - Pleural effusion [Unknown]
  - Blood pressure abnormal [Unknown]
  - Off label use [Unknown]
